FAERS Safety Report 12789946 (Version 1)
Quarter: 2016Q3

REPORT INFORMATION
  Report Type: Spontaneous
  Country: US (occurrence: US)
  Receive Date: 20160928
  Receipt Date: 20160928
  Transmission Date: 20161109
  Serious: Yes (Other)
  Sender: FDA-Public Use
  Company Number: US-ASTRAZENECA-2016SF01064

PATIENT
  Sex: Female

DRUGS (8)
  1. PEPCID [Concomitant]
     Active Substance: FAMOTIDINE
     Route: 048
  2. CALCIUM CITRATE [Concomitant]
     Active Substance: CALCIUM CITRATE
  3. ARIMIDEX [Suspect]
     Active Substance: ANASTROZOLE
     Dosage: 1.0MG UNKNOWN
     Route: 048
     Dates: start: 20160516
  4. IBRANCE [Suspect]
     Active Substance: PALBOCICLIB
     Route: 065
  5. VITAMIN B12 [Concomitant]
     Active Substance: CYANOCOBALAMIN
     Dosage: 5000 MICROGRAM-100 MICROGRAM
     Route: 060
  6. LOSARTAN. [Concomitant]
     Active Substance: LOSARTAN
     Route: 048
     Dates: start: 20160608
  7. CREON [Concomitant]
     Active Substance: PANCRELIPASE AMYLASE\PANCRELIPASE LIPASE\PANCRELIPASE PROTEASE
     Dosage: 24000-76000-120000 UNIT CAPSULES , THREEE TIMES EVERY DAY WITH MEALS AND ONE CAPSULE WITH EACH SN...
     Route: 048
     Dates: start: 20160720
  8. VITAMIN D3 [Concomitant]
     Active Substance: CHOLECALCIFEROL
     Dosage: 1000 UNIT EVERY DAY
     Route: 048
     Dates: start: 20160608

REACTIONS (3)
  - Anaemia [Unknown]
  - Metastases to bone [Unknown]
  - Metastases to liver [Unknown]
